FAERS Safety Report 9282986 (Version 2)
Quarter: 2013Q3

REPORT INFORMATION
  Report Type: Spontaneous
  Country: US (occurrence: US)
  Receive Date: 20130510
  Receipt Date: 20130715
  Transmission Date: 20140515
  Serious: Yes (Hospitalization, Other)
  Sender: FDA-Public Use
  Company Number: US-BAYER-2013-058179

PATIENT
  Age: 36 Year
  Sex: Female

DRUGS (7)
  1. YAZ [Suspect]
     Dosage: UNK
     Dates: start: 2005, end: 2006
  2. YASMIN [Suspect]
     Dosage: UNK
     Dates: start: 2005, end: 2006
  3. OCELLA [Suspect]
     Dosage: UNK
     Dates: start: 2005, end: 2006
  4. CYMBALTA [Concomitant]
  5. LEVAQUIN [Concomitant]
  6. KETOROLAC [Concomitant]
  7. DEMEROL [Concomitant]

REACTIONS (11)
  - Pulmonary embolism [None]
  - Pulmonary embolism [Recovered/Resolved]
  - Vena cava thrombosis [None]
  - Pelvic venous thrombosis [None]
  - Abdominal pain [None]
  - Pain [None]
  - Injury [None]
  - General physical health deterioration [None]
  - Anxiety [None]
  - Emotional distress [None]
  - Pain [None]
